FAERS Safety Report 5365783-5 (Version None)
Quarter: 2007Q2

REPORT INFORMATION
  Report Type: 
  Country: None (occurrence: None)
  Receive Date: 20070611
  Receipt Date: 20070216
  Transmission Date: 20071010
  Serious: Yes (Death)
  Sender: FDA-Public Use
  Company Number: USA-2007-0026527

PATIENT
  Age: 22 Month
  Sex: Female
  Weight: 10 kg

DRUGS (2)
  1. OXYCODONE HCL [Suspect]
     Indication: ACCIDENTAL EXPOSURE
  2. OXYMORPHONE                (OXYMORPHONE) [Suspect]
     Indication: ACCIDENTAL EXPOSURE

REACTIONS (1)
  - OVERDOSE [None]
